FAERS Safety Report 9760464 (Version 2)
Quarter: 2013Q4

REPORT INFORMATION
  Report Type: Report from Study
  Country: CA (occurrence: CA)
  Receive Date: 20131216
  Receipt Date: 20131216
  Transmission Date: 20140711
  Serious: Yes (Other)
  Sender: FDA-Public Use
  Company Number: CA-BRISTOL-MYERS SQUIBB COMPANY-19666320

PATIENT
  Age: 68 Year
  Sex: Male

DRUGS (3)
  1. ORENCIA [Suspect]
     Indication: RHEUMATOID ARTHRITIS
     Dates: start: 20130131
  2. DOXYCYCLINE [Concomitant]
  3. CELEBREX [Concomitant]

REACTIONS (9)
  - Spinal column stenosis [Unknown]
  - Pulmonary oedema [Unknown]
  - Lower respiratory tract infection [Unknown]
  - Eye disorder [Unknown]
  - Mass [Unknown]
  - Cough [Unknown]
  - Wheezing [Unknown]
  - Sinusitis [Unknown]
  - Skin reaction [Unknown]
